FAERS Safety Report 24847279 (Version 1)
Quarter: 2025Q1

REPORT INFORMATION
  Report Type: Spontaneous
  Country: US (occurrence: US)
  Receive Date: 20250116
  Receipt Date: 20250116
  Transmission Date: 20250409
  Serious: Yes (Other)
  Sender: AUROBINDO
  Company Number: US-MLMSERVICE-20241228-PI324351-00176-2

PATIENT
  Age: 41 Year
  Sex: Female

DRUGS (1)
  1. LISINOPRIL AND HYDROCHLOROTHIAZIDE [Suspect]
     Active Substance: HYDROCHLOROTHIAZIDE\LISINOPRIL
     Indication: Hypertension
     Route: 065

REACTIONS (2)
  - Small intestinal obstruction [Recovered/Resolved]
  - Angioedema [Recovered/Resolved]
